FAERS Safety Report 9204843 (Version 1)
Quarter: 2013Q1

REPORT INFORMATION
  Report Type: Spontaneous
  Country: US (occurrence: None)
  Receive Date: 20120709
  Receipt Date: 20120709
  Transmission Date: 20140127
  Serious: Yes (Other)
  Sender: FDA-Public Use
  Company Number: PHEH2011US04122

PATIENT
  Age: 61 Year
  Sex: Female
  Weight: 54.4 kg

DRUGS (11)
  1. GLEEVEC [Suspect]
     Route: 048
     Dates: start: 20110622
  2. VAGIFEM (ESTRADIOL)TABLET [Concomitant]
  3. SIMVASTATIN (SIMVASTATIN) [Concomitant]
  4. SIMVASTATIN (SIMVASTATIN) [Concomitant]
  5. SYNTHROID (LEVOTHYROXINE SODIUM) [Concomitant]
  6. SYNTHROID (LEVOTHYROXINE SODIUM) [Concomitant]
  7. MULTI VITAMINS (ASCORBIC ACID, ERGOCALCIFEROL, FOLIC ACID, NICOTINAMIDE, PANTHENOL, RETINOL, RIBOFLAVIN, THIAMINE HYDROCHLORIDE) [Concomitant]
  8. OMEGA 3 (FISH OIL) CAPSULE [Concomitant]
  9. VITAMIN D (ERGOCALCIFEROL) [Concomitant]
  10. CALCIUM D SANDOZ (CALCIUM, COLECALCIFEROL) TABLET [Concomitant]
  11. VITAMIN C [Concomitant]

REACTIONS (3)
  - Diarrhoea [None]
  - Fatigue [None]
  - Nausea [None]
